FAERS Safety Report 9790964 (Version 1)
Quarter: 2013Q4

REPORT INFORMATION
  Report Type: Report from Study
  Country: US (occurrence: US)
  Receive Date: 20131231
  Receipt Date: 20131231
  Transmission Date: 20140711
  Serious: Yes (Hospitalization, Other)
  Sender: FDA-Public Use
  Company Number: US-ABBVIE-13P-163-1182801-00

PATIENT
  Age: 57 Year
  Sex: Male

DRUGS (15)
  1. HUMIRA [Suspect]
     Indication: ANKYLOSING SPONDYLITIS
     Route: 058
     Dates: end: 20031019
  2. HUMIRA [Suspect]
     Route: 058
     Dates: end: 20051217
  3. HUMIRA [Suspect]
     Route: 058
     Dates: start: 200601, end: 200605
  4. HUMIRA [Suspect]
     Route: 058
     Dates: start: 200607, end: 2009
  5. HUMIRA [Suspect]
     Route: 058
     Dates: start: 2010, end: 2010
  6. HUMIRA [Suspect]
     Route: 058
     Dates: start: 2011, end: 20130430
  7. HUMIRA [Suspect]
     Route: 058
     Dates: end: 201309
  8. HUMIRA [Suspect]
     Route: 058
     Dates: end: 20131207
  9. METHOTREXATE [Concomitant]
     Indication: PRODUCT USED FOR UNKNOWN INDICATION
  10. VITAMIN D [Concomitant]
     Indication: PRODUCT USED FOR UNKNOWN INDICATION
  11. FOLIC ACID [Concomitant]
     Indication: PRODUCT USED FOR UNKNOWN INDICATION
  12. CENTRUM SILVER [Concomitant]
     Indication: PRODUCT USED FOR UNKNOWN INDICATION
  13. CLOBETASOL [Concomitant]
     Indication: PSORIASIS
  14. TAZORAC [Concomitant]
     Indication: PSORIASIS
  15. DESENEX [Concomitant]
     Indication: PRODUCT USED FOR UNKNOWN INDICATION

REACTIONS (22)
  - Joint instability [Unknown]
  - Road traffic accident [Unknown]
  - Fall [Unknown]
  - Wound [Unknown]
  - Haemorrhage [Unknown]
  - Laceration [Unknown]
  - Fall [Unknown]
  - Fall [Unknown]
  - Urinary tract infection [Unknown]
  - Upper respiratory tract infection [Unknown]
  - Product quality issue [Unknown]
  - Multiple injuries [Unknown]
  - Immunodeficiency [Unknown]
  - Neck injury [Unknown]
  - Fall [Unknown]
  - Fall [Unknown]
  - Wound [Unknown]
  - Wound [Unknown]
  - Wound [Unknown]
  - Chest pain [Unknown]
  - Sputum discoloured [Unknown]
  - Wound [Unknown]
